FAERS Safety Report 8350804 (Version 2)
Quarter: 2012Q4

REPORT INFORMATION
  Report Type: 
  Country: US (occurrence: US)
  Receive Date: 20120124
  Receipt Date: 20121015
  Transmission Date: 20130627
  Serious: Yes (Hospitalization)
  Sender: FDA-Public Use
  Company Number: US-BAYER-2012-005063

PATIENT
  Age: 37 Year
  Sex: Female
  Weight: 102 kg

DRUGS (12)
  1. YASMIN [Suspect]
     Indication: CONTRACEPTION
     Dosage: UNK
     Route: 048
     Dates: start: 200303
  2. YASMIN [Suspect]
     Indication: CONTRACEPTION
     Dosage: UNK
     Dates: start: 2004
  3. YASMIN [Suspect]
     Indication: CONTRACEPTION
     Dosage: UNK
     Dates: start: 20070704, end: 20080705
  4. YASMIN [Suspect]
     Indication: CONTRACEPTION
     Dosage: UNK
     Dates: start: 2000, end: 200901
  5. OCELLA [Suspect]
     Indication: CONTRACEPTION
     Dosage: UNK
     Route: 048
     Dates: start: 20080726, end: 20090113
  6. INDERAL [Concomitant]
     Indication: MIGRAINE
     Dosage: 120 mg, UNK
     Dates: start: 2000
  7. RELPAX [Concomitant]
     Indication: MIGRAINE
     Dosage: 40 mg, UNK
  8. ENDOCET [Concomitant]
     Indication: BACK PAIN
     Dosage: 10-325 mg
  9. KLONOPIN [Concomitant]
     Dosage: 1 mg, UNK
  10. AMBIEN [Concomitant]
     Indication: SLEEP DISORDER THERAPY
     Dosage: 10 mg,
     Dates: start: 2008
  11. METHYLPREDNISOLONE [Concomitant]
     Dosage: 4 mg, UNK
  12. MAXALT [Concomitant]
     Dosage: 10 mg, daily

REACTIONS (11)
  - Pulmonary embolism [Recovering/Resolving]
  - Deep vein thrombosis [Recovered/Resolved]
  - Chest pain [Recovering/Resolving]
  - Pain in extremity [Recovered/Resolved]
  - Pain in extremity [Recovered/Resolved]
  - Oedema peripheral [Recovered/Resolved]
  - Oedema peripheral [Recovered/Resolved]
  - Asthenia [Recovered/Resolved]
  - Emotional distress [None]
  - Anxiety [None]
  - Fear [None]
